FAERS Safety Report 8800655 (Version 6)
Quarter: 2013Q2

REPORT INFORMATION
  Report Type: Spontaneous
  Country: US (occurrence: US)
  Receive Date: 20120921
  Receipt Date: 20130528
  Transmission Date: 20140414
  Serious: Yes (Hospitalization, Disabling, Other)
  Sender: FDA-Public Use
  Company Number: US-UCBSA-065807

PATIENT
  Age: 24 Year
  Sex: Female

DRUGS (4)
  1. CIMZIA [Suspect]
     Indication: CROHN^S DISEASE
     Dates: start: 20120418, end: 2012
  2. PREDNISONE [Concomitant]
     Dosage: HIGH DOSES, 40 MG
  3. PREDNISONE [Concomitant]
     Dosage: 20 MG
  4. FERROUS GLUCONATE [Concomitant]
     Indication: MINERAL SUPPLEMENTATION
     Dosage: UNKNOWN DOSE TWICE A DAY

REACTIONS (10)
  - Post procedural complication [Recovering/Resolving]
  - Crohn^s disease [Not Recovered/Not Resolved]
  - Sinusitis [Recovered/Resolved]
  - Urinary tract infection [Unknown]
  - Microcytic anaemia [Not Recovered/Not Resolved]
  - Haemorrhoidal haemorrhage [Not Recovered/Not Resolved]
  - Tachycardia [Recovered/Resolved]
  - Haematochezia [Not Recovered/Not Resolved]
  - Eyelid cyst [Recovered/Resolved]
  - Tooth disorder [Recovered/Resolved]
